FAERS Safety Report 20087848 (Version 1)
Quarter: 2021Q4

REPORT INFORMATION
  Report Type: Spontaneous
  Country: TW (occurrence: TW)
  Receive Date: 20211118
  Receipt Date: 20211118
  Transmission Date: 20220303
  Serious: Yes (Other)
  Sender: FDA-Public Use
  Company Number: TW-BoehringerIngelheim-2021-BI-137895

PATIENT
  Age: 58 Year
  Sex: Male

DRUGS (2)
  1. GILOTRIF [Suspect]
     Active Substance: AFATINIB
     Indication: Lung adenocarcinoma
     Dates: start: 20200121
  2. GILOTRIF [Suspect]
     Active Substance: AFATINIB
     Indication: EGFR gene mutation

REACTIONS (4)
  - Lymphangiosis carcinomatosa [Unknown]
  - Rash [Unknown]
  - Paronychia [Unknown]
  - Therapy partial responder [Unknown]

NARRATIVE: CASE EVENT DATE: 20200101
